FAERS Safety Report 9803754 (Version 1)
Quarter: 2014Q1

REPORT INFORMATION
  Report Type: Spontaneous
  Country: US (occurrence: US)
  Receive Date: 20140108
  Receipt Date: 20140108
  Transmission Date: 20141002
  Serious: No
  Sender: FDA-Public Use
  Company Number: US-GLAXOSMITHKLINE-A1033963A

PATIENT
  Age: 72 Year
  Sex: Male

DRUGS (6)
  1. LOVAZA [Suspect]
     Indication: BLOOD TRIGLYCERIDES INCREASED
     Dosage: 2CAP PER DAY
     Route: 048
     Dates: start: 20130101, end: 20130717
  2. LIPITOR [Concomitant]
  3. MVI [Concomitant]
  4. COQ10 [Concomitant]
  5. B-COMPLEX [Concomitant]
  6. TUMERIC [Concomitant]

REACTIONS (1)
  - Prostatic specific antigen increased [Not Recovered/Not Resolved]
